FAERS Safety Report 8540003-9 (Version None)
Quarter: 2012Q3

REPORT INFORMATION
  Report Type: 
  Country: None (occurrence: None)
  Receive Date: 20120726
  Receipt Date: 20120717
  Transmission Date: 20120928
  Serious: Yes (Other)
  Sender: FDA-Public Use
  Company Number: GB-TEVA-348732ISR

PATIENT
  Age: 74 Year
  Sex: Female
  Weight: 58.968 kg

DRUGS (12)
  1. PREDNISOLONE [Suspect]
     Indication: TEMPORAL ARTERITIS
     Dates: start: 20120501
  2. ALENDRONATE SODIUM [Concomitant]
     Dates: start: 20120330
  3. FEXOFENADINE [Concomitant]
     Dates: start: 20120330, end: 20120429
  4. ROSUVASTATIN [Concomitant]
     Dates: start: 20120330
  5. SODIUM CROMOGLICATE [Concomitant]
     Dates: start: 20120330
  6. CELECOXIB [Concomitant]
     Dates: start: 20120330, end: 20120429
  7. RANITIDINE [Concomitant]
     Dates: start: 20120502, end: 20120601
  8. METHOTREXATE [Concomitant]
     Dates: start: 20120330
  9. TIMOLOL MALEATE [Concomitant]
     Dates: start: 20120330
  10. LANSOPRAZOLE [Concomitant]
     Dates: start: 20120501, end: 20120529
  11. FOLIC ACID [Concomitant]
     Dates: start: 20120330
  12. METFORMIN HYDROCHLORIDE [Concomitant]
     Dates: start: 20120330

REACTIONS (3)
  - DYSPEPSIA [None]
  - ABDOMINAL PAIN UPPER [None]
  - GASTROOESOPHAGEAL REFLUX DISEASE [None]
